FAERS Safety Report 18681379 (Version 11)
Quarter: 2021Q1

REPORT INFORMATION
  Report Type: Report from Study
  Country: BR (occurrence: BR)
  Receive Date: 20201229
  Receipt Date: 20210218
  Transmission Date: 20210419
  Serious: Yes (Death, Life-Threatening, Hospitalization, Other)
  Sender: FDA-Public Use
  Company Number: BR-GILEAD-2020-0510832

PATIENT
  Age: 73 Year
  Sex: Male
  Weight: 82 kg

DRUGS (127)
  1. TOCILIZUMAB. [Suspect]
     Active Substance: TOCILIZUMAB
     Dosage: UNK
     Route: 042
     Dates: start: 20201202
  2. AZITHROMYCIN ANHYDROUS. [Concomitant]
     Active Substance: AZITHROMYCIN ANHYDROUS
     Indication: COVID-19 PNEUMONIA
     Dosage: 500 MG, QD
     Dates: start: 20201130, end: 20201202
  3. ROCURONIUM [Concomitant]
     Active Substance: ROCURONIUM BROMIDE
     Dosage: 20 MG
     Dates: start: 20201213, end: 20201213
  4. OXYGEN. [Concomitant]
     Active Substance: OXYGEN
     Dosage: 70 %
     Route: 007
     Dates: start: 20201202
  5. OXYGEN. [Concomitant]
     Active Substance: OXYGEN
     Dosage: TRANSTRACHEAL
     Route: 007
     Dates: start: 20201219
  6. OXYGEN. [Concomitant]
     Active Substance: OXYGEN
     Dosage: 70 %
     Route: 007
     Dates: start: 20201202
  7. OXYGEN. [Concomitant]
     Active Substance: OXYGEN
     Dosage: 30?DEC?2020
     Dates: start: 20201220
  8. OXYGEN. [Concomitant]
     Active Substance: OXYGEN
     Dosage: TRANSTRACHEAL
     Dates: start: 20201218
  9. OXYGEN. [Concomitant]
     Active Substance: OXYGEN
     Dosage: TRANSTRACHEAL
     Dates: start: 20201225
  10. OXYGEN. [Concomitant]
     Active Substance: OXYGEN
     Dosage: 31?DEC?2020
     Dates: start: 20201228
  11. TRAMADOL. [Concomitant]
     Active Substance: TRAMADOL
     Indication: PAIN
     Dosage: 100 MG
     Dates: start: 20201217
  12. REMDESIVIR. [Suspect]
     Active Substance: REMDESIVIR
     Dosage: 200 MG, QD
     Route: 042
     Dates: start: 20201202
  13. TOCILIZUMAB. [Suspect]
     Active Substance: TOCILIZUMAB
     Indication: COVID-19 PNEUMONIA
     Dosage: UNK
     Route: 042
     Dates: start: 20201202
  14. ROCURONIUM [Concomitant]
     Active Substance: ROCURONIUM BROMIDE
     Indication: TRACHEOSTOMY
     Dosage: 50 MG
     Dates: start: 20201201, end: 20201201
  15. FUROSEMIDE. [Concomitant]
     Active Substance: FUROSEMIDE
     Indication: RENAL FAILURE
     Dosage: 20 MG, BID
     Dates: start: 20201210, end: 20201214
  16. OXYGEN. [Concomitant]
     Active Substance: OXYGEN
     Dosage: 60 %
     Route: 007
     Dates: start: 20201211
  17. OXYGEN. [Concomitant]
     Active Substance: OXYGEN
     Dosage: 50 %
     Route: 007
     Dates: start: 20201208
  18. OXYGEN. [Concomitant]
     Active Substance: OXYGEN
     Dosage: 70 %
     Route: 007
     Dates: start: 20201202
  19. OXYGEN. [Concomitant]
     Active Substance: OXYGEN
     Dosage: TRANSTRACHEAL
     Dates: start: 20201224
  20. OXYGEN. [Concomitant]
     Active Substance: OXYGEN
     Dosage: 50 %
     Route: 007
     Dates: start: 20201208
  21. OXYGEN. [Concomitant]
     Active Substance: OXYGEN
     Dosage: 50 %
     Route: 007
     Dates: start: 20201209
  22. OXYGEN. [Concomitant]
     Active Substance: OXYGEN
     Dosage: TRANSTRACHEAL
     Dates: start: 20201222
  23. OXYGEN. [Concomitant]
     Active Substance: OXYGEN
     Dosage: 35 %
     Route: 007
     Dates: start: 20201205
  24. OXYGEN. [Concomitant]
     Active Substance: OXYGEN
     Dosage: 30 %
     Route: 007
     Dates: start: 20201206
  25. OXYGEN. [Concomitant]
     Active Substance: OXYGEN
     Dosage: 10 L
     Route: 055
     Dates: start: 20201201
  26. OXYGEN. [Concomitant]
     Active Substance: OXYGEN
     Dosage: TRANSTRACHEAL
     Dates: start: 20210105
  27. OXYGEN. [Concomitant]
     Active Substance: OXYGEN
     Dosage: TRANSTRACHEAL
     Dates: start: 20201218
  28. OXYGEN. [Concomitant]
     Active Substance: OXYGEN
     Dosage: TRANSTRACHEAL
     Dates: start: 20201223
  29. OXYGEN. [Concomitant]
     Active Substance: OXYGEN
     Dosage: 50 %
     Dates: start: 20210113
  30. OXYGEN. [Concomitant]
     Active Substance: OXYGEN
     Dosage: 45 %
     Dates: start: 20210115
  31. OXYGEN. [Concomitant]
     Active Substance: OXYGEN
     Dosage: 75 %
     Dates: start: 20210119
  32. MIDAZOLAM. [Concomitant]
     Active Substance: MIDAZOLAM
     Indication: ENDOTRACHEAL INTUBATION
     Dosage: 60 ML
     Dates: start: 20201201, end: 20201201
  33. MIDAZOLAM. [Concomitant]
     Active Substance: MIDAZOLAM
     Indication: TRACHEOSTOMY
     Dosage: 50 ML
     Dates: start: 20201201, end: 20201201
  34. MIDAZOLAM. [Concomitant]
     Active Substance: MIDAZOLAM
     Dosage: 50 ML
     Dates: start: 20201213, end: 20201213
  35. MIDAZOLAM. [Concomitant]
     Active Substance: MIDAZOLAM
     Dosage: 50 MG
     Dates: start: 20201213, end: 20201213
  36. CISATRACURIUM. [Concomitant]
     Active Substance: CISATRACURIUM
     Indication: SEDATION
     Dosage: UNK
     Dates: start: 20201108, end: 20201205
  37. CISATRACURIUM. [Concomitant]
     Active Substance: CISATRACURIUM
     Dosage: 2 MG
     Dates: start: 20201108, end: 20201205
  38. BROMOPRIDE [Concomitant]
     Active Substance: BROMOPRIDE
     Dosage: 10 MG
     Dates: start: 20201231, end: 20210104
  39. OXYGEN. [Concomitant]
     Active Substance: OXYGEN
     Dosage: 50 %
     Route: 007
     Dates: start: 20201209
  40. OXYGEN. [Concomitant]
     Active Substance: OXYGEN
     Dosage: TRANSTRACHEAL04?JAN?2021, 07?JAN?2021, 15?DEC?2020, 16?DEC?2020, 06?JAN?2021
     Dates: start: 20201221
  41. OXYGEN. [Concomitant]
     Active Substance: OXYGEN
     Dosage: TRANSTRACHEAL
     Dates: start: 20201225
  42. OXYGEN. [Concomitant]
     Active Substance: OXYGEN
     Dosage: TRANSTRACHEAL
     Dates: start: 20201224
  43. GLYCERINE [Concomitant]
     Active Substance: GLYCERIN
     Indication: CONSTIPATION
     Dates: start: 20201209
  44. CEFTRIAXONE. [Concomitant]
     Active Substance: CEFTRIAXONE
     Indication: COVID-19 PNEUMONIA
     Dosage: 1 G
     Dates: start: 20201130, end: 20201202
  45. NORADRENALINE [NOREPINEPHRINE] [Concomitant]
     Active Substance: NOREPINEPHRINE
     Indication: HYPOTENSION
     Dosage: UNK
     Dates: start: 20201201
  46. DEXMEDETOMIDINE. [Concomitant]
     Active Substance: DEXMEDETOMIDINE
     Indication: ENDOTRACHEAL INTUBATION
     Dates: start: 20201207
  47. OXYGEN. [Concomitant]
     Active Substance: OXYGEN
     Dosage: 25 %
     Route: 007
     Dates: start: 20201207
  48. OXYGEN. [Concomitant]
     Active Substance: OXYGEN
     Dosage: 70 %
     Route: 007
     Dates: start: 20201202
  49. OXYGEN. [Concomitant]
     Active Substance: OXYGEN
     Dosage: 09?JAN?2021
     Route: 007
     Dates: start: 20201213
  50. OXYGEN. [Concomitant]
     Active Substance: OXYGEN
     Dosage: 35 %
     Route: 007
     Dates: start: 20201205
  51. OXYGEN. [Concomitant]
     Active Substance: OXYGEN
     Dosage: 25 %
     Route: 007
     Dates: start: 20201207
  52. OXYGEN. [Concomitant]
     Active Substance: OXYGEN
     Dosage: 75 %
     Route: 007
     Dates: start: 20201204
  53. OXYGEN. [Concomitant]
     Active Substance: OXYGEN
     Dosage: TRANSTRACHEAL
     Route: 007
     Dates: start: 20201220
  54. OXYGEN. [Concomitant]
     Active Substance: OXYGEN
     Dosage: 25 %
     Dates: start: 20201229
  55. OXYGEN. [Concomitant]
     Active Substance: OXYGEN
     Dosage: TRANSTRACHEAL
     Dates: start: 20201217
  56. OXYGEN. [Concomitant]
     Active Substance: OXYGEN
     Dosage: TRANSTRACHEAL
     Dates: start: 20201223
  57. OXYGEN. [Concomitant]
     Active Substance: OXYGEN
     Dosage: 75 %
     Dates: start: 20210120
  58. REMDESIVIR. [Suspect]
     Active Substance: REMDESIVIR
     Indication: COVID-19 PNEUMONIA
     Dosage: 100 MG, QD
     Route: 042
     Dates: start: 20201202
  59. MIDAZOLAM. [Concomitant]
     Active Substance: MIDAZOLAM
     Dosage: 60 MG
     Dates: start: 20201220, end: 20201220
  60. CISATRACURIUM. [Concomitant]
     Active Substance: CISATRACURIUM
     Dosage: 60 ML
     Dates: start: 20201201, end: 20201205
  61. LIDOCAINE. [Concomitant]
     Active Substance: LIDOCAINE
     Indication: ENDOTRACHEAL INTUBATION
     Dosage: 40 MG
     Dates: start: 20201213, end: 20201213
  62. DEXMEDETOMIDINE. [Concomitant]
     Active Substance: DEXMEDETOMIDINE
     Indication: ENDOTRACHEAL INTUBATION
     Dosage: UNK
     Dates: start: 20201207
  63. BROMOPRIDE [Concomitant]
     Active Substance: BROMOPRIDE
     Dosage: UNK
     Dates: start: 20201210
  64. BROMOPRIDE [Concomitant]
     Active Substance: BROMOPRIDE
     Dosage: 5 MG
     Dates: start: 20201210, end: 20201217
  65. OXYGEN. [Concomitant]
     Active Substance: OXYGEN
     Dosage: 50 %
     Route: 007
     Dates: start: 20201210
  66. OXYGEN. [Concomitant]
     Active Substance: OXYGEN
     Dosage: 25 %
     Dates: start: 20201223
  67. OXYGEN. [Concomitant]
     Active Substance: OXYGEN
     Dosage: 50 %
     Route: 007
     Dates: start: 20201210
  68. OXYGEN. [Concomitant]
     Active Substance: OXYGEN
     Dosage: 75 %
     Route: 007
     Dates: start: 20201204
  69. OXYGEN. [Concomitant]
     Active Substance: OXYGEN
     Dosage: TRANSTRACHEAL
     Dates: start: 20201229
  70. OXYGEN. [Concomitant]
     Active Substance: OXYGEN
     Dosage: 50 %
     Dates: start: 20210114
  71. OXYGEN. [Concomitant]
     Active Substance: OXYGEN
     Dosage: 65 %
  72. QUETIAPINE. [Concomitant]
     Active Substance: QUETIAPINE
     Dosage: 25 MG
     Dates: start: 20201221, end: 20201222
  73. ENOXAPARIN [Concomitant]
     Active Substance: ENOXAPARIN
     Indication: DEEP VEIN THROMBOSIS
     Dosage: 20 MG, QD
     Dates: start: 20201216
  74. DEXAMETHASONE. [Concomitant]
     Active Substance: DEXAMETHASONE
     Indication: COVID-19 PNEUMONIA
     Dosage: 6 MG, QD
     Dates: start: 20201130, end: 20201214
  75. FENTANYL. [Concomitant]
     Active Substance: FENTANYL
     Indication: SEDATION
     Dosage: UNK
     Dates: start: 20201213, end: 20201213
  76. FENTANYL. [Concomitant]
     Active Substance: FENTANYL
     Indication: TRACHEOSTOMY
     Dosage: 60 ML
     Dates: start: 20201201, end: 20201216
  77. CISATRACURIUM. [Concomitant]
     Active Substance: CISATRACURIUM
     Dosage: 2 MG
     Dates: start: 20201108, end: 20201208
  78. NORADRENALINE [NOREPINEPHRINE] [Concomitant]
     Active Substance: NOREPINEPHRINE
     Dosage: 40 MG
     Dates: start: 20201208
  79. IPRATROPIUM BROMIDE. [Concomitant]
     Active Substance: IPRATROPIUM BROMIDE
     Indication: BRONCHOSPASM
     Dosage: UNK
     Dates: start: 20201201, end: 20201201
  80. EPINEPHRINE. [Concomitant]
     Active Substance: EPINEPHRINE
     Indication: TRACHEOSTOMY
     Dosage: 1 MG
     Dates: start: 20201213, end: 20201213
  81. PROPOFOL. [Concomitant]
     Active Substance: PROPOFOL
     Indication: TRACHEOSTOMY
     Dosage: 10 MG
     Dates: start: 20201213, end: 20201213
  82. PIPERACILLIN AND TAZOBACTAM [Concomitant]
     Active Substance: PIPERACILLIN SODIUM\TAZOBACTAM SODIUM
     Indication: PNEUMONIA BACTERIAL
     Dosage: UNK
     Dates: start: 20201213
  83. PIPERACILLIN AND TAZOBACTAM [Concomitant]
     Active Substance: PIPERACILLIN SODIUM\TAZOBACTAM SODIUM
     Dosage: 4500 MG
     Dates: start: 20201213, end: 20201219
  84. OXYGEN. [Concomitant]
     Active Substance: OXYGEN
     Dosage: 50 %
     Route: 007
     Dates: start: 20201212
  85. OXYGEN. [Concomitant]
     Active Substance: OXYGEN
     Dosage: 31?DEC?2020
     Dates: start: 20201228
  86. OXYGEN. [Concomitant]
     Active Substance: OXYGEN
     Dosage: 30 %
     Route: 007
     Dates: start: 20201206
  87. OXYGEN. [Concomitant]
     Active Substance: OXYGEN
     Dosage: TRANSTRACHEAL
     Dates: start: 20201226
  88. OXYGEN. [Concomitant]
     Active Substance: OXYGEN
     Dosage: 60 %
     Route: 007
     Dates: start: 20201212
  89. OXYGEN. [Concomitant]
     Active Substance: OXYGEN
     Dosage: 50 %
     Route: 007
     Dates: start: 20201208
  90. OXYGEN. [Concomitant]
     Active Substance: OXYGEN
     Dosage: TRANSTRACHEAL
     Dates: start: 20201227
  91. OXYGEN. [Concomitant]
     Active Substance: OXYGEN
     Dosage: 75 %
     Dates: start: 20210121
  92. OXYGEN. [Concomitant]
     Active Substance: OXYGEN
     Dosage: 60 %
     Dates: start: 20210118
  93. OMEPRAZOLE. [Concomitant]
     Active Substance: OMEPRAZOLE
     Indication: GASTROINTESTINAL DISORDER PROPHYLAXIS
     Dates: start: 20201201
  94. NORADRENALINE [NOREPINEPHRINE] [Concomitant]
     Active Substance: NOREPINEPHRINE
     Indication: SEPTIC SHOCK
     Dosage: 40 MG
     Dates: start: 20201201, end: 20201206
  95. IPRATROPIUM BROMIDE. [Concomitant]
     Active Substance: IPRATROPIUM BROMIDE
     Dates: start: 20201201, end: 20201201
  96. GLYCERIN [GLYCEROL] [Concomitant]
     Active Substance: GLYCERIN
     Indication: CONSTIPATION
     Dosage: 12 %
     Dates: start: 20201209, end: 20201216
  97. OXYGEN. [Concomitant]
     Active Substance: OXYGEN
     Dosage: 03?JAN?2021, 02?JAN?2021
     Route: 007
     Dates: start: 20201206
  98. OXYGEN. [Concomitant]
     Active Substance: OXYGEN
     Dosage: 75 %
     Route: 007
     Dates: start: 20201203
  99. OXYGEN. [Concomitant]
     Active Substance: OXYGEN
     Dosage: 30 %
     Route: 007
     Dates: start: 20201206
  100. OXYGEN. [Concomitant]
     Active Substance: OXYGEN
     Dosage: 30?DEC?2020
     Dates: start: 20201227
  101. OXYGEN. [Concomitant]
     Active Substance: OXYGEN
     Dosage: TRANSTRACHEAL
     Dates: start: 20201221
  102. OXYGEN. [Concomitant]
     Active Substance: OXYGEN
     Dosage: TRANSTRACHEAL
     Dates: start: 20210105
  103. OXYGEN. [Concomitant]
     Active Substance: OXYGEN
     Dosage: 70 %
     Dates: start: 20210116
  104. AMIKACIN. [Concomitant]
     Active Substance: AMIKACIN
  105. ENOXAPARIN [Concomitant]
     Active Substance: ENOXAPARIN
     Indication: THROMBOSIS PROPHYLAXIS
     Dosage: 40 MG, QD
     Dates: start: 20201130, end: 20201214
  106. MIDAZOLAM. [Concomitant]
     Active Substance: MIDAZOLAM
     Indication: SEDATION
     Dosage: 60 ML
     Dates: start: 20201201, end: 20201214
  107. FENTANYL. [Concomitant]
     Active Substance: FENTANYL
     Dosage: 10 ML
     Dates: start: 20201213, end: 20201213
  108. FENTANYL. [Concomitant]
     Active Substance: FENTANYL
     Dosage: 60 ML
     Dates: start: 20201220, end: 20201220
  109. ROCURONIUM [Concomitant]
     Active Substance: ROCURONIUM BROMIDE
     Indication: ENDOTRACHEAL INTUBATION
     Dosage: UNK
     Dates: start: 20201201, end: 20201213
  110. LIDOCAINE. [Concomitant]
     Active Substance: LIDOCAINE
     Dosage: 20 ML
     Dates: start: 20201201, end: 20201201
  111. OXYGEN. [Concomitant]
     Active Substance: OXYGEN
     Dosage: TRANSTRACHEAL
     Route: 007
     Dates: start: 20201214
  112. OXYGEN. [Concomitant]
     Active Substance: OXYGEN
     Dosage: 75 %
     Route: 007
     Dates: start: 20201203
  113. OXYGEN. [Concomitant]
     Active Substance: OXYGEN
     Dosage: 60 %
     Route: 007
     Dates: start: 20201212
  114. OXYGEN. [Concomitant]
     Active Substance: OXYGEN
     Dosage: 08?JAN?2021, 11?JAN?2021, 18?JAN?2021
     Route: 007
     Dates: start: 20201222
  115. OXYGEN. [Concomitant]
     Active Substance: OXYGEN
     Dosage: 10 L/MIN
     Route: 055
     Dates: start: 20201201
  116. OXYGEN. [Concomitant]
     Active Substance: OXYGEN
     Dosage: 25 %
     Route: 007
     Dates: start: 20201207
  117. OXYGEN. [Concomitant]
     Active Substance: OXYGEN
     Dosage: 75 %
     Route: 007
     Dates: start: 20201203
  118. OXYGEN. [Concomitant]
     Active Substance: OXYGEN
     Dosage: 25 %
     Dates: start: 20201219
  119. OXYGEN. [Concomitant]
     Active Substance: OXYGEN
     Dosage: 50 %
     Route: 007
     Dates: start: 20201213
  120. OXYGEN. [Concomitant]
     Active Substance: OXYGEN
     Dosage: TRANSTRACHEAL
     Dates: start: 20201214
  121. OXYGEN. [Concomitant]
     Active Substance: OXYGEN
     Dosage: 70 %
     Route: 007
     Dates: start: 20201202
  122. OXYGEN. [Concomitant]
     Active Substance: OXYGEN
     Dosage: 50 %
     Route: 007
     Dates: start: 20201209
  123. OXYGEN. [Concomitant]
     Active Substance: OXYGEN
     Dosage: TRANSTRACHEAL
     Dates: start: 20201217
  124. OXYGEN. [Concomitant]
     Active Substance: OXYGEN
     Dosage: 12?JAN?2021
     Dates: start: 20210110
  125. OXYGEN. [Concomitant]
     Active Substance: OXYGEN
     Dosage: 100 %
     Dates: start: 20210101
  126. DEXTROKETAMINE [Concomitant]
  127. ONDANSETRON [Concomitant]
     Active Substance: ONDANSETRON
     Indication: VOMITING
     Dosage: 4 MG
     Dates: start: 20201004

REACTIONS (4)
  - Renal failure [Not Recovered/Not Resolved]
  - Pneumonia bacterial [Recovered/Resolved]
  - Pneumonia [Fatal]
  - Bacterial sepsis [Recovered/Resolved]

NARRATIVE: CASE EVENT DATE: 20201209
